FAERS Safety Report 9781837 (Version 2)
Quarter: 2014Q1

REPORT INFORMATION
  Report Type: Report from Study
  Country: IT (occurrence: IT)
  Receive Date: 20131225
  Receipt Date: 20140318
  Transmission Date: 20141002
  Serious: Yes (Hospitalization, Other)
  Sender: FDA-Public Use
  Company Number: IT-AMGEN-ITACT2013089269

PATIENT
  Age: 65 Year
  Sex: Male
  Weight: 60 kg

DRUGS (9)
  1. PANITUMUMAB [Suspect]
     Indication: OESOPHAGEAL ADENOCARCINOMA
     Dosage: 390 MG, Q2WK
     Route: 042
     Dates: start: 20110817, end: 20111003
  2. TAXOTERE [Concomitant]
     Indication: OESOPHAGEAL ADENOCARCINOMA
     Dosage: 81 MG, Q2WK
     Route: 042
     Dates: start: 20110817, end: 20111003
  3. CISPLATIN [Concomitant]
     Indication: OESOPHAGEAL ADENOCARCINOMA
     Dosage: 68 MG, Q2WK
     Route: 042
     Dates: start: 20110817, end: 20131003
  4. 5-FU                               /00098801/ [Concomitant]
     Indication: OESOPHAGEAL ADENOCARCINOMA
     Dosage: 810 MG, Q2WK
     Route: 042
     Dates: start: 20110817, end: 20111004
  5. 5-FU                               /00098801/ [Concomitant]
     Dosage: 540 MG, Q2WK
     Route: 042
     Dates: start: 20110817, end: 20111005
  6. OMEPRAZOLE [Concomitant]
     Indication: PROPHYLAXIS
     Dosage: 20 MG, QD
     Route: 048
     Dates: start: 20110816
  7. SIMVASTATINA [Concomitant]
     Dosage: 40 MG, UNK
     Route: 048
  8. METFORMIN [Concomitant]
     Indication: DIABETES MELLITUS
     Route: 048
  9. CLEXANE [Concomitant]
     Dosage: 8000 UNK, UNK
     Route: 058

REACTIONS (2)
  - Interstitial lung disease [Not Recovered/Not Resolved]
  - Dysphagia [Unknown]
